FAERS Safety Report 9262318 (Version 1)
Quarter: 2013Q2

REPORT INFORMATION
  Report Type: Spontaneous
  Country: US (occurrence: None)
  Receive Date: 20130425
  Receipt Date: 20130425
  Transmission Date: 20140414
  Serious: Yes (Other)
  Sender: FDA-Public Use
  Company Number: None

PATIENT
  Age: 56 Year
  Sex: Male
  Weight: 108 kg

DRUGS (8)
  1. TELAPREVIR [Suspect]
  2. PEGINTERFERON ALPHA2A [Concomitant]
  3. PEGASYS-RIBAVIRIN [Concomitant]
  4. FLUOCINONIDE [Concomitant]
  5. LIDEX [Concomitant]
  6. ZESTORIC [Concomitant]
  7. ASPIRIN [Concomitant]
  8. MULTIVITAMIN [Concomitant]

REACTIONS (2)
  - Rash [None]
  - Nausea [None]
